FAERS Safety Report 11148659 (Version 4)
Quarter: 2015Q3

REPORT INFORMATION
  Report Type: Spontaneous
  Country: GR (occurrence: GR)
  Receive Date: 20150529
  Receipt Date: 20150723
  Transmission Date: 20151125
  Serious: No
  Sender: FDA-Public Use
  Company Number: GR-ACTELION-A-CH2015-118148

PATIENT
  Age: 37 Year
  Sex: Female
  Weight: 80 kg

DRUGS (6)
  1. TRACLEER [Suspect]
     Active Substance: BOSENTAN
     Indication: SKIN ULCER
     Dosage: 125 MG, BID
     Route: 048
     Dates: start: 20140930, end: 20150518
  2. TRACLEER [Suspect]
     Active Substance: BOSENTAN
     Dosage: 62.5 MG, BID
     Route: 048
     Dates: start: 20140827, end: 20140929
  3. PREZOLON [Concomitant]
     Active Substance: PREDNISOLONE
     Dosage: 5 MG, UNK
  4. IRBESARTAN. [Concomitant]
     Active Substance: IRBESARTAN
     Dosage: UNK
     Dates: start: 20141112
  5. NEXIUM [Concomitant]
     Active Substance: ESOMEPRAZOLE MAGNESIUM
     Dosage: 40 MG, UNK
     Dates: start: 20140827
  6. PROCORALAN [Concomitant]
     Active Substance: IVABRADINE
     Dosage: UNK
     Dates: start: 20141112

REACTIONS (1)
  - Pregnancy [Not Recovered/Not Resolved]
